FAERS Safety Report 8418353-6 (Version None)
Quarter: 2012Q2

REPORT INFORMATION
  Report Type: 
  Country: None (occurrence: None)
  Receive Date: 20120607
  Receipt Date: 20120529
  Transmission Date: 20120825
  Serious: Yes (Other)
  Sender: FDA-Public Use
  Company Number: US-SANOFI-AVENTIS-2010SA078355

PATIENT
  Age: 65 Year
  Sex: Female
  Weight: 63.18 kg

DRUGS (24)
  1. ALPRAZOLAM [Concomitant]
     Indication: ANXIETY
  2. ALPRAZOLAM [Concomitant]
  3. MULTAQ [Suspect]
     Route: 048
     Dates: start: 20101125
  4. MULTAQ [Suspect]
     Route: 048
     Dates: start: 20101125
  5. XANAX [Concomitant]
     Indication: ANXIETY
  6. MULTAQ [Suspect]
     Route: 048
     Dates: start: 20101125
  7. MULTAQ [Suspect]
     Route: 048
     Dates: start: 20101125
  8. ASPIRIN [Concomitant]
     Dosage: 1/2 A TABLET OF 325 MG
     Route: 048
     Dates: start: 20110101
  9. ACTONEL [Concomitant]
     Dosage: TOOK FOR 2 TO 3 YRS
     Route: 065
     Dates: end: 20110101
  10. MULTAQ [Suspect]
     Indication: ATRIAL FIBRILLATION
     Route: 048
     Dates: start: 20101125
  11. MULTAQ [Suspect]
     Indication: ATRIAL FLUTTER
     Route: 048
     Dates: start: 20101125
  12. MULTAQ [Suspect]
     Route: 048
     Dates: start: 20101125
  13. MULTAQ [Suspect]
     Route: 048
     Dates: start: 20101125
  14. CENTRUM [Concomitant]
  15. FISH OIL [Concomitant]
  16. MULTAQ [Suspect]
     Route: 048
     Dates: start: 20101125
  17. MULTAQ [Suspect]
     Route: 048
     Dates: start: 20101125
  18. ASPIRIN [Concomitant]
     Route: 048
  19. ALPRAZOLAM [Concomitant]
  20. ATORVASTATIN CALCIUM [Concomitant]
  21. CALTRATE +D [Concomitant]
  22. MULTAQ [Suspect]
     Route: 048
     Dates: start: 20101125
  23. MULTAQ [Suspect]
     Route: 048
     Dates: start: 20101125
  24. ROSUVASTATIN [Concomitant]
     Dates: start: 20110101

REACTIONS (20)
  - TENSION HEADACHE [None]
  - NERVOUSNESS [None]
  - GENERALISED ANXIETY DISORDER [None]
  - BLEPHAROSPASM [None]
  - PULMONARY FUNCTION TEST ABNORMAL [None]
  - RASH ERYTHEMATOUS [None]
  - ATRIAL FIBRILLATION [None]
  - SKIN EXFOLIATION [None]
  - HEART RATE DECREASED [None]
  - EYE PAIN [None]
  - DEPRESSION [None]
  - HEART RATE INCREASED [None]
  - NIGHTMARE [None]
  - ANGLE CLOSURE GLAUCOMA [None]
  - CIRCADIAN RHYTHM SLEEP DISORDER [None]
  - BLOOD GLUCOSE INCREASED [None]
  - PRODUCT QUALITY ISSUE [None]
  - VISUAL IMPAIRMENT [None]
  - WHEEZING [None]
  - TOOTH INFECTION [None]
